FAERS Safety Report 7368217-4 (Version None)
Quarter: 2011Q1

REPORT INFORMATION
  Report Type: 
  Country: None (occurrence: None)
  Receive Date: 20110225
  Receipt Date: 20110125
  Transmission Date: 20110831
  Serious: No
  Sender: FDA-Public Use
  Company Number: 321582

PATIENT
  Age: 49 Year
  Sex: Female

DRUGS (2)
  1. GLUCOPHAGE [Concomitant]
  2. VICTOZA [Suspect]
     Indication: TYPE 2 DIABETES MELLITUS
     Dosage: 1.2 MG, QD, SUBCUTANEOUS
     Route: 058
     Dates: start: 20100701

REACTIONS (2)
  - WEIGHT DECREASED [None]
  - IRRITABILITY [None]
